FAERS Safety Report 4293135-8 (Version None)
Quarter: 2004Q1

REPORT INFORMATION
  Report Type: 
  Country: None (occurrence: None)
  Receive Date: 20040212
  Receipt Date: 20030528
  Transmission Date: 20041129
  Serious: Yes (Other)
  Sender: FDA-Public Use
  Company Number: US-GLAXOSMITHKLINE-A0409701A

PATIENT
  Age: 38 Year
  Sex: Male

DRUGS (2)
  1. PAXIL [Suspect]
     Indication: DEPRESSION
     Dosage: 60MG PER DAY
     Route: 048
     Dates: start: 20021001
  2. WELLBUTRIN SR [Concomitant]
     Route: 065
     Dates: start: 20030101

REACTIONS (13)
  - ADVERSE EVENT [None]
  - ANGER [None]
  - ANXIETY [None]
  - DIZZINESS [None]
  - DRUG DEPENDENCE [None]
  - DRUG WITHDRAWAL SYNDROME [None]
  - ELECTRIC SHOCK [None]
  - GENERAL PHYSICAL HEALTH DETERIORATION [None]
  - ILL-DEFINED DISORDER [None]
  - INFLUENZA LIKE ILLNESS [None]
  - IRRITABILITY [None]
  - MENTAL DISORDER [None]
  - VOMITING [None]
